FAERS Safety Report 8571040-6 (Version None)
Quarter: 2012Q3

REPORT INFORMATION
  Report Type: 
  Country: None (occurrence: None)
  Receive Date: 20120730
  Receipt Date: 20120730
  Transmission Date: 20120928
  Serious: Yes (Other)
  Sender: FDA-Public Use
  Company Number: None

PATIENT
  Age: 49 Year
  Sex: Female
  Weight: 70.7611 kg

DRUGS (1)
  1. DOXYCYCLINE HCL [Suspect]
     Indication: ACNE
     Dosage: 1 TABLE DAILY PO
     Route: 048
     Dates: start: 20120707, end: 20120710

REACTIONS (2)
  - HYPERSENSITIVITY [None]
  - PRODUCT SUBSTITUTION ISSUE [None]
